FAERS Safety Report 20654959 (Version 2)
Quarter: 2022Q2

REPORT INFORMATION
  Report Type: Spontaneous
  Country: SG (occurrence: SG)
  Receive Date: 20220330
  Receipt Date: 20220413
  Transmission Date: 20220720
  Serious: Yes (Hospitalization, Other)
  Sender: FDA-Public Use
  Company Number: SG-VALIDUS PHARMACEUTICALS LLC-SG-VDP-2022-015298

PATIENT

DRUGS (10)
  1. FUROSEMIDE [Suspect]
     Active Substance: FUROSEMIDE
     Indication: Product used for unknown indication
     Dosage: 20 MG, QD
     Route: 065
  2. TAMSULOSIN HYDROCHLORIDE [Suspect]
     Active Substance: TAMSULOSIN HYDROCHLORIDE
     Indication: Product used for unknown indication
     Dosage: UNK
     Route: 065
  3. ASPIRIN [Suspect]
     Active Substance: ASPIRIN
     Indication: Product used for unknown indication
     Dosage: 100 MILLIGRAM, QD
     Route: 065
  4. ATORVASTATIN [Suspect]
     Active Substance: ATORVASTATIN
     Indication: Product used for unknown indication
     Dosage: UNK
     Route: 065
  5. CALCIUM ACETATE [Suspect]
     Active Substance: CALCIUM ACETATE
     Indication: Product used for unknown indication
     Dosage: 1 DF
     Route: 065
  6. GABAPENTIN [Suspect]
     Active Substance: GABAPENTIN
     Indication: Product used for unknown indication
     Dosage: UNK
     Route: 065
  7. MIRTAZAPINE [Suspect]
     Active Substance: MIRTAZAPINE
     Indication: Product used for unknown indication
     Dosage: 30 MG, QD
     Route: 065
  8. NEUROBION [Suspect]
     Active Substance: CYANOCOBALAMIN\PYRIDOXINE\THIAMINE
     Indication: Product used for unknown indication
     Dosage: 1 DF, QD
     Route: 065
  9. OMEPRAZOLE [Suspect]
     Active Substance: OMEPRAZOLE
     Indication: Product used for unknown indication
     Dosage: 20 MG, QD
     Route: 065
  10. ENOXAPARIN SODIUM [Concomitant]
     Active Substance: ENOXAPARIN SODIUM
     Indication: Product used for unknown indication
     Dosage: UNK
     Route: 065

REACTIONS (47)
  - Activated partial thromboplastin time prolonged [Unknown]
  - Coagulopathy [Unknown]
  - Contusion [Unknown]
  - Prothrombin time prolonged [Unknown]
  - Haemorrhage [Unknown]
  - Cytomegalovirus colitis [Unknown]
  - Septic shock [Unknown]
  - Hypovolaemic shock [Unknown]
  - Splenic infarction [Not Recovered/Not Resolved]
  - Myelofibrosis [Unknown]
  - Splenomegaly [Unknown]
  - Chronic kidney disease [Unknown]
  - Fall [Unknown]
  - Impaired self-care [Unknown]
  - Affective disorder [Unknown]
  - Sepsis [Unknown]
  - Bronchopulmonary aspergillosis [Unknown]
  - Pneumonia [Unknown]
  - Thrombocytopenia [Unknown]
  - Cavernous sinus thrombosis [Unknown]
  - Generalised tonic-clonic seizure [Unknown]
  - Azotaemia [Unknown]
  - Sinusitis [Unknown]
  - Orbital apex syndrome [Unknown]
  - Urinary tract infection [Unknown]
  - Respiratory tract infection fungal [Unknown]
  - Anisocytosis [Unknown]
  - Gastrointestinal wall thickening [Unknown]
  - Lung consolidation [Unknown]
  - Red blood cell count decreased [Unknown]
  - Bilirubin conjugated increased [Unknown]
  - White blood cell count increased [Unknown]
  - Platelet count decreased [Unknown]
  - Blood sodium decreased [Unknown]
  - Blood glucose increased [Unknown]
  - Blood creatinine increased [Unknown]
  - Blood urea increased [Unknown]
  - Alanine aminotransferase decreased [Unknown]
  - Blood albumin decreased [Unknown]
  - Creatinine renal clearance decreased [Unknown]
  - Sinus tachycardia [Unknown]
  - Atelectasis [Unknown]
  - Gastroenteritis [Unknown]
  - Inflammation [Unknown]
  - Pleural effusion [Unknown]
  - Haematoma [Unknown]
  - Haemoglobin decreased [Unknown]

NARRATIVE: CASE EVENT DATE: 20180301
